FAERS Safety Report 11324515 (Version 3)
Quarter: 2015Q3

REPORT INFORMATION
  Report Type: Spontaneous
  Country: US (occurrence: US)
  Receive Date: 20150730
  Receipt Date: 20150824
  Transmission Date: 20151125
  Serious: Yes (Hospitalization)
  Sender: FDA-Public Use
  Company Number: US-TEVA-582118USA

PATIENT
  Age: 16 Year
  Sex: Male
  Weight: 70.37 kg

DRUGS (2)
  1. NORTRIPTYLINE [Suspect]
     Active Substance: NORTRIPTYLINE
     Indication: ABDOMINAL MIGRAINE
     Dosage: 25 MILLIGRAM DAILY;
     Route: 065
     Dates: start: 20150511, end: 20150719
  2. RIZATRIPTAN BENZOATE. [Interacting]
     Active Substance: RIZATRIPTAN BENZOATE
     Route: 065

REACTIONS (13)
  - Confusional state [Recovered/Resolved]
  - Nervousness [Recovered/Resolved]
  - Dysarthria [Recovered/Resolved]
  - Drug interaction [Recovered/Resolved]
  - Tremor [Recovered/Resolved]
  - Headache [Recovered/Resolved]
  - Speech disorder [Recovered/Resolved]
  - Disorientation [Recovered/Resolved]
  - Anxiety [Recovered/Resolved]
  - Aphasia [Recovered/Resolved]
  - Heart rate increased [Recovered/Resolved]
  - Feeling abnormal [Recovered/Resolved]
  - Drug dose titration not performed [Unknown]

NARRATIVE: CASE EVENT DATE: 20150718
